FAERS Safety Report 11300351 (Version 1)
Quarter: 2015Q3

REPORT INFORMATION
  Report Type: Spontaneous
  Country: US (occurrence: US)
  Receive Date: 20150722
  Receipt Date: 20150722
  Transmission Date: 20151125
  Serious: No
  Sender: FDA-Public Use
  Company Number: US-ELI_LILLY_AND_COMPANY-US201309009665

PATIENT
  Sex: Female

DRUGS (7)
  1. QUINAPRIL [Concomitant]
     Active Substance: QUINAPRIL\QUINAPRIL HYDROCHLORIDE
     Indication: BLOOD PRESSURE MEASUREMENT
     Dosage: UNK, QD
  2. LOVASTATIN. [Concomitant]
     Active Substance: LOVASTATIN
     Indication: BLOOD CHOLESTEROL
     Dosage: UNK, QD
  3. COLACE [Concomitant]
     Active Substance: DOCUSATE SODIUM
     Dosage: UNK, QD
  4. ASPIRIN. [Concomitant]
     Active Substance: ASPIRIN
     Dosage: UNK, QD
  5. AMLODIPINE [Concomitant]
     Active Substance: AMLODIPINE BESYLATE
     Indication: BLOOD PRESSURE MEASUREMENT
     Dosage: UNK, QD
  6. CLARITIN                                /USA/ [Concomitant]
     Indication: HYPERSENSITIVITY
     Dosage: UNK, QD
  7. EVISTA [Suspect]
     Active Substance: RALOXIFENE HYDROCHLORIDE
     Indication: HOT FLUSH
     Dosage: 60 MG, QD
     Route: 048
     Dates: start: 1995

REACTIONS (4)
  - Intervertebral disc protrusion [Unknown]
  - Drug dose omission [Unknown]
  - Rotator cuff syndrome [Unknown]
  - Back disorder [Unknown]

NARRATIVE: CASE EVENT DATE: 2011
